FAERS Safety Report 4882428-9 (Version None)
Quarter: 2005Q4

REPORT INFORMATION
  Report Type: 
  Country: None (occurrence: None)
  Receive Date: 20051201
  Receipt Date: 20050930
  Transmission Date: 20060501
  Serious: No
  Sender: FDA-Public Use
  Company Number: 2005PV002665

PATIENT
  Age: 66 Year
  Sex: Male
  Weight: 106.9582 kg

DRUGS (16)
  1. BYETTA [Suspect]
     Indication: DIABETES MELLITUS NON-INSULIN-DEPENDENT
     Dosage: 5 MCG;BID;SC
     Route: 058
     Dates: start: 20050906, end: 20050930
  2. ALTACE [Concomitant]
  3. LOZOL [Concomitant]
  4. MEVACOR [Concomitant]
  5. KLOR-CON [Concomitant]
  6. ASPIRIN [Concomitant]
  7. ALLOPURINOL [Concomitant]
  8. VITAMIN B COMPLEX CAP [Concomitant]
  9. COLCHICINE [Concomitant]
  10. NEXIUM CAPDR [Concomitant]
  11. ELAVIL [Concomitant]
  12. CORTISPORIN [Concomitant]
  13. XOPENEX [Concomitant]
  14. ADVAIR DISKUS 100/50 [Concomitant]
  15. AMARYL [Concomitant]
  16. GLUCOPHAGE [Concomitant]

REACTIONS (1)
  - BLOOD CREATININE INCREASED [None]
